FAERS Safety Report 10150088 (Version 1)
Quarter: 2014Q2

REPORT INFORMATION
  Report Type: Spontaneous
  Country: US (occurrence: US)
  Receive Date: 20140502
  Receipt Date: 20140502
  Transmission Date: 20141212
  Serious: No
  Sender: FDA-Public Use
  Company Number: US-ASTRAZENECA-2014SE26216

PATIENT
  Age: 72 Year
  Sex: Male
  Weight: 108.9 kg

DRUGS (2)
  1. PULMICORT FLEXHALER [Suspect]
     Indication: PULMONARY FIBROSIS
     Route: 055
     Dates: start: 2014
  2. TERAZOSIN [Concomitant]
     Indication: PROSTATIC DISORDER
     Route: 048
     Dates: start: 201402

REACTIONS (5)
  - Eye irritation [Recovering/Resolving]
  - Rhinorrhoea [Recovering/Resolving]
  - Throat irritation [Unknown]
  - Off label use [Unknown]
  - Off label use [Not Recovered/Not Resolved]
